FAERS Safety Report 21932495 (Version 1)
Quarter: 2023Q1

REPORT INFORMATION
  Report Type: Spontaneous
  Country: US (occurrence: US)
  Receive Date: 20230131
  Receipt Date: 20230131
  Transmission Date: 20230418
  Serious: Yes (Other)
  Sender: FDA-Public Use
  Company Number: US-FreseniusKabi-FK202301190

PATIENT
  Age: 66 Year
  Sex: Male

DRUGS (9)
  1. AMIODARONE [Suspect]
     Active Substance: AMIODARONE
     Indication: Ventricular tachycardia
  2. AMIODARONE [Suspect]
     Active Substance: AMIODARONE
     Indication: Arrhythmic storm
     Dosage: ON AMIODARONE FOR 6 MONTHS WAS INCREASED DUE TO VT STORM
  3. AMIODARONE [Suspect]
     Active Substance: AMIODARONE
     Route: 040
  4. LIDOCAINE [Concomitant]
     Active Substance: LIDOCAINE
     Indication: Arrhythmic storm
  5. LIDOCAINE [Concomitant]
     Active Substance: LIDOCAINE
     Route: 040
  6. SOLU-MEDROL [Concomitant]
     Active Substance: METHYLPREDNISOLONE SODIUM SUCCINATE
     Indication: Product used for unknown indication
  7. MYCOPHENOLATE MOFETIL [Concomitant]
     Active Substance: MYCOPHENOLATE MOFETIL
     Indication: Drug therapy
  8. Lvermectin [Concomitant]
     Indication: Strongyloidiasis
  9. THYMOCYTE IMMUNE GLOBULIN NOS [Concomitant]
     Active Substance: THYMOCYTE IMMUNE GLOBULIN NOS
     Indication: Drug therapy

REACTIONS (1)
  - Transplant dysfunction [Recovered/Resolved]
